FAERS Safety Report 19661483 (Version 1)
Quarter: 2021Q3

REPORT INFORMATION
  Report Type: Spontaneous
  Country: GB (occurrence: GB)
  Receive Date: 20210805
  Receipt Date: 20210805
  Transmission Date: 20211014
  Serious: Yes (Hospitalization, Other)
  Sender: FDA-Public Use
  Company Number: GB-PFIZER INC-2021501855

PATIENT
  Age: 80 Year
  Sex: Female

DRUGS (1)
  1. LYRICA [Suspect]
     Active Substance: PREGABALIN
     Dosage: 125 MG, DAILY(75 MG IN MORNING AND 50 MG IN EVENING)

REACTIONS (6)
  - Urinary incontinence [Unknown]
  - Confusional state [Unknown]
  - Food refusal [Unknown]
  - Therapeutic response unexpected [Unknown]
  - Normal pressure hydrocephalus [Unknown]
  - Fall [Unknown]
